FAERS Safety Report 24595347 (Version 1)
Quarter: 2024Q4

REPORT INFORMATION
  Report Type: Spontaneous
  Country: US (occurrence: US)
  Receive Date: 20241109
  Receipt Date: 20241109
  Transmission Date: 20250115
  Serious: No
  Sender: ABBVIE
  Company Number: US-ABBVIE-5988524

PATIENT
  Sex: Female

DRUGS (2)
  1. CREON [Suspect]
     Active Substance: PANCRELIPASE AMYLASE\PANCRELIPASE LIPASE\PANCRELIPASE PROTEASE
     Indication: Pancreatic failure
     Dosage: FIRST ADMIN DATE: 2022?36000 UNIT 8 CAPSULE PER DAY?SOMETIMES 3 CAPSULE PER MEAL
     Route: 048
  2. CREON [Suspect]
     Active Substance: PANCRELIPASE AMYLASE\PANCRELIPASE LIPASE\PANCRELIPASE PROTEASE
     Indication: Pancreatic failure
     Dosage: 2 TO 3 CAPSULE PER MEAL AND ONE WITH SNACK.
     Route: 048
     Dates: start: 2021, end: 2022

REACTIONS (5)
  - Abdominal distension [Unknown]
  - Adverse food reaction [Not Recovered/Not Resolved]
  - Constipation [Not Recovered/Not Resolved]
  - Drug ineffective [Not Recovered/Not Resolved]
  - Flatulence [Unknown]
